FAERS Safety Report 14936178 (Version 2)
Quarter: 2018Q2

REPORT INFORMATION
  Report Type: Spontaneous
  Country: JP (occurrence: JP)
  Receive Date: 20180524
  Receipt Date: 20180625
  Transmission Date: 20180711
  Serious: No
  Sender: FDA-Public Use
  Company Number: JP-SUCAMPO PHARMACEUTICALS INC.-SPI201800327

PATIENT
  Age: 57 Year
  Sex: Female

DRUGS (6)
  1. AMITIZA [Suspect]
     Active Substance: LUBIPROSTONE
     Indication: CONSTIPATION
     Dosage: 24 MCG, BID
     Route: 048
     Dates: start: 20180328, end: 20180329
  2. FLUMETHOLON [Concomitant]
     Active Substance: FLUOROMETHOLONE
     Dosage: 1 DF, TID
     Route: 047
     Dates: start: 20180326
  3. ALESION [Concomitant]
     Active Substance: EPINASTINE HYDROCHLORIDE
     Dosage: 1 DF, TID
     Route: 047
     Dates: start: 20180326
  4. LOXONIN [Concomitant]
     Active Substance: LOXOPROFEN SODIUM
     Dosage: UNK, PRN
  5. BAYASPIRIN [Concomitant]
     Active Substance: ASPIRIN
     Dosage: UNK
  6. NEXIUM [Concomitant]
     Active Substance: ESOMEPRAZOLE MAGNESIUM
     Dosage: UNK

REACTIONS (1)
  - Hypersensitivity [Recovered/Resolved]

NARRATIVE: CASE EVENT DATE: 20180328
